FAERS Safety Report 7769393-1 (Version None)
Quarter: 2011Q3

REPORT INFORMATION
  Report Type: 
  Country: None (occurrence: None)
  Receive Date: 20110920
  Receipt Date: 20110913
  Transmission Date: 20111222
  Serious: No
  Sender: FDA-Public Use
  Company Number: ACO_26383_2011

PATIENT
  Age: 55 Year
  Sex: Female

DRUGS (1)
  1. AMPYRA [Suspect]
     Indication: GAIT DISTURBANCE
     Dosage: , ORAL
     Route: 048
     Dates: start: 20100501, end: 20110822

REACTIONS (2)
  - BLOOD UREA INCREASED [None]
  - BLOOD CREATININE INCREASED [None]
